FAERS Safety Report 9079721 (Version 3)
Quarter: 2013Q2

REPORT INFORMATION
  Report Type: Spontaneous
  Country: US (occurrence: US)
  Receive Date: 20130215
  Receipt Date: 20130412
  Transmission Date: 20140414
  Serious: Yes (Disabling)
  Sender: FDA-Public Use
  Company Number: US-GLAXOSMITHKLINE-A1011446A

PATIENT
  Age: 84 Year
  Sex: Male

DRUGS (3)
  1. ADVAIR [Suspect]
     Indication: PRODUCT USED FOR UNKNOWN INDICATION
     Dosage: 1PUFF TWICE PER DAY
     Route: 055
  2. PRO-AIR [Concomitant]
  3. DOXYCYCLINE [Concomitant]

REACTIONS (4)
  - Performance status decreased [Recovered/Resolved]
  - Inhalation therapy [Recovered/Resolved]
  - Therapeutic response decreased [Recovered/Resolved]
  - Product quality issue [Unknown]
